FAERS Safety Report 21692548 (Version 3)
Quarter: 2023Q1

REPORT INFORMATION
  Report Type: Spontaneous
  Country: US (occurrence: None)
  Receive Date: 20221207
  Receipt Date: 20230209
  Transmission Date: 20230418
  Serious: Yes (Other)
  Sender: FDA-Public Use
  Company Number: 2022A395166

PATIENT
  Age: 60 Year
  Sex: Male
  Weight: 95.2 kg

DRUGS (15)
  1. LYNPARZA [Suspect]
     Active Substance: OLAPARIB
     Indication: Prostate cancer
     Route: 048
     Dates: start: 202209, end: 202211
  2. ENZALUTAMIDE [Suspect]
     Active Substance: ENZALUTAMIDE
     Indication: Prostate cancer
     Route: 048
     Dates: start: 2022, end: 2022
  3. AMLODIPINE BESYLATE [Concomitant]
     Active Substance: AMLODIPINE BESYLATE
     Dosage: 2.5MG UNKNOWN
  4. BACLOFEN [Concomitant]
     Active Substance: BACLOFEN
     Dosage: 20.0MG UNKNOWN
  5. CHLORPHENIRAMINE MALEATE [Concomitant]
     Active Substance: CHLORPHENIRAMINE MALEATE
     Dosage: 12.0MG UNKNOWN
  6. CLOBETASOL PROPIONATE [Concomitant]
     Active Substance: CLOBETASOL PROPIONATE
     Dosage: 0.05% UNKNOWN
  7. DEXTROMETHORPHAN HYDROBROMIDE [Concomitant]
     Active Substance: DEXTROMETHORPHAN HYDROBROMIDE
  8. ACETAMINOPHEN [Concomitant]
     Active Substance: ACETAMINOPHEN
     Dosage: 325.0MG UNKNOWN
  9. PHENYLEPHRINE HYDROCHLORIDE [Concomitant]
     Active Substance: PHENYLEPHRINE HYDROCHLORIDE
  10. DULOXETINE HYDROCHLORIDE [Concomitant]
     Active Substance: DULOXETINE HYDROCHLORIDE
     Dosage: 60.0MG UNKNOWN
  11. FLT?TICASONE PROPIONATE [Concomitant]
     Dosage: 50.0UG UNKNOWN
  12. LISINOPRIL [Concomitant]
     Active Substance: LISINOPRIL
     Dosage: 30.0MG UNKNOWN
  13. METHADONE HYDROCHLORIDE [Concomitant]
     Active Substance: METHADONE HYDROCHLORIDE
     Dosage: 10.0MG UNKNOWN
  14. SENNOSIDES A AND B [Concomitant]
     Active Substance: SENNOSIDES A AND B
  15. ACETAMINOPHEN [Concomitant]
     Active Substance: ACETAMINOPHEN

REACTIONS (4)
  - Prostatic specific antigen increased [Unknown]
  - Fatigue [Unknown]
  - Nasopharyngitis [Unknown]
  - Somnolence [Recovered/Resolved]

NARRATIVE: CASE EVENT DATE: 20221101
